FAERS Safety Report 13654582 (Version 1)
Quarter: 2017Q2

REPORT INFORMATION
  Report Type: Spontaneous
  Country: IN (occurrence: IN)
  Receive Date: 20170615
  Receipt Date: 20170615
  Transmission Date: 20170830
  Serious: Yes (Hospitalization)
  Sender: FDA-Public Use
  Company Number: IN-STRIDES ARCOLAB LIMITED-2017SP009351

PATIENT

DRUGS (3)
  1. ZIDOVUDINE. [Concomitant]
     Active Substance: ZIDOVUDINE
     Indication: HIV INFECTION
     Dosage: UNK
     Route: 065
  2. NEVIRAPINE. [Suspect]
     Active Substance: NEVIRAPINE
     Indication: HIV INFECTION
     Dosage: UNK
     Route: 065
  3. LAMIVUDINE. [Concomitant]
     Active Substance: LAMIVUDINE
     Indication: HIV INFECTION
     Dosage: UNK
     Route: 065

REACTIONS (21)
  - Aggression [Recovered/Resolved]
  - Abnormal dreams [Recovered/Resolved]
  - Toxic epidermal necrolysis [Recovered/Resolved]
  - Blister [Recovered/Resolved]
  - Nikolsky^s sign [Recovered/Resolved]
  - Delirium [Recovered/Resolved]
  - Purpura [Recovered/Resolved]
  - Conjunctival hyperaemia [Recovered/Resolved]
  - Psychotic disorder [Recovered/Resolved]
  - Oral disorder [Recovered/Resolved]
  - Eyelid oedema [Recovered/Resolved]
  - Penile ulceration [Recovered/Resolved]
  - Scab [Recovered/Resolved]
  - Speech disorder [Recovered/Resolved]
  - Hyponatraemia [Recovered/Resolved]
  - Depressed level of consciousness [Recovered/Resolved]
  - Abnormal behaviour [Recovered/Resolved]
  - Mucosal erosion [Recovered/Resolved]
  - Scrotal ulcer [Recovered/Resolved]
  - Genital lesion [Recovered/Resolved]
  - Conjunctivitis [Recovered/Resolved]
